FAERS Safety Report 7732453-5 (Version None)
Quarter: 2011Q3

REPORT INFORMATION
  Report Type: 
  Country: None (occurrence: None)
  Receive Date: 20110906
  Receipt Date: 20110823
  Transmission Date: 20111222
  Serious: Yes (Hospitalization)
  Sender: FDA-Public Use
  Company Number: IT-ELI_LILLY_AND_COMPANY-IT201108007111

PATIENT
  Age: 40 Year
  Sex: Male

DRUGS (2)
  1. OLANZAPINE [Suspect]
     Dosage: 405 MG, UNK
     Dates: start: 20110701
  2. OLANZAPINE [Suspect]
     Indication: SCHIZOPHRENIA
     Dosage: 210 MG, UNK
     Route: 030
     Dates: start: 20110701

REACTIONS (4)
  - NEUROLEPTIC MALIGNANT SYNDROME [None]
  - NEUTROPHIL COUNT INCREASED [None]
  - BRADYCARDIA [None]
  - LEUKOCYTOSIS [None]
